FAERS Safety Report 20649865 (Version 1)
Quarter: 2022Q1

REPORT INFORMATION
  Report Type: Spontaneous
  Country: US (occurrence: None)
  Receive Date: 20220329
  Receipt Date: 20220329
  Transmission Date: 20220423
  Serious: No
  Sender: FDA-Public Use
  Company Number: None

PATIENT
  Sex: Female

DRUGS (1)
  1. KESIMPTA [Suspect]
     Active Substance: OFATUMUMAB
     Indication: Multiple sclerosis
     Dosage: FREQUENCY : MONTHLY;?
     Route: 058
     Dates: start: 20220216

REACTIONS (5)
  - Vision blurred [None]
  - Feeling abnormal [None]
  - Disturbance in attention [None]
  - Drug ineffective [None]
  - Loss of personal independence in daily activities [None]
